FAERS Safety Report 6986228-5 (Version None)
Quarter: 2010Q3

REPORT INFORMATION
  Report Type: 
  Country: None (occurrence: None)
  Receive Date: 20100915
  Receipt Date: 20090611
  Transmission Date: 20110219
  Serious: No
  Sender: FDA-Public Use
  Company Number: US-WYE-H09741309

PATIENT
  Age: 69 Year
  Sex: Female

DRUGS (12)
  1. PRISTIQ [Suspect]
     Indication: DEPRESSION
     Route: 048
     Dates: start: 20090604
  2. PRISTIQ [Suspect]
     Indication: ANXIETY
  3. AMOXICILLIN [Concomitant]
  4. BIAXIN [Concomitant]
  5. NEXIUM [Concomitant]
  6. ATACAND [Concomitant]
  7. CLONIDINE [Concomitant]
  8. ACETYLSALICYLIC ACID [Concomitant]
  9. LOVASTATIN [Concomitant]
  10. XANAX [Suspect]
     Indication: PANIC REACTION
     Dosage: 0.5 TO 1 MG THREE TIMES DAILY AS NEEDED
  11. XANAX [Suspect]
     Indication: ANXIETY
  12. PREVACID [Concomitant]

REACTIONS (5)
  - ABNORMAL BEHAVIOUR [None]
  - DYSARTHRIA [None]
  - FATIGUE [None]
  - IMPAIRED DRIVING ABILITY [None]
  - MEMORY IMPAIRMENT [None]
